FAERS Safety Report 7581941-3 (Version None)
Quarter: 2011Q2

REPORT INFORMATION
  Report Type: 
  Country: None (occurrence: None)
  Receive Date: 20110629
  Receipt Date: 20110624
  Transmission Date: 20111010
  Serious: Yes (Death)
  Sender: FDA-Public Use
  Company Number: US-CELGENEUS-163-21880-11060571

PATIENT
  Sex: Male

DRUGS (13)
  1. REVLIMID [Suspect]
     Indication: MULTIPLE MYELOMA
     Dosage: 25 MILLIGRAM
     Route: 048
     Dates: start: 20080701, end: 20080101
  2. PROBIOTIC [Concomitant]
     Route: 048
  3. BACTRIM DS [Concomitant]
     Route: 048
  4. CALCITRIOL [Concomitant]
     Route: 048
  5. DEXAMETHASONE [Concomitant]
     Dosage: 40 MILLIGRAM
     Route: 048
     Dates: start: 20100820
  6. ZOLPIDEM TARTRATE [Concomitant]
     Dosage: 5 MILLIGRAM
     Route: 048
  7. ASPIRIN [Concomitant]
     Dosage: 81 MILLIGRAM
     Route: 048
  8. REVLIMID [Suspect]
     Dosage: 5-10MG
     Route: 048
     Dates: start: 20091001, end: 20100101
  9. REVLIMID [Suspect]
     Dosage: 10 MILLIGRAM
     Route: 048
     Dates: start: 20101007, end: 20110527
  10. MAGNESIUM OXIDE [Concomitant]
     Dosage: 800 MILLIGRAM
     Route: 048
  11. MULTI-VITAMINS [Concomitant]
     Route: 048
  12. CITRACAL PLUS VITAMIN D [Concomitant]
     Dosage: 250-200MG
     Route: 048
  13. VALTREX [Concomitant]
     Dosage: 500 MILLIGRAM
     Route: 048

REACTIONS (2)
  - MULTIPLE MYELOMA [None]
  - PNEUMOCOCCAL SEPSIS [None]
